FAERS Safety Report 8265011-7 (Version None)
Quarter: 2012Q2

REPORT INFORMATION
  Report Type: 
  Country: None (occurrence: None)
  Receive Date: 20120406
  Receipt Date: 20120327
  Transmission Date: 20120825
  Serious: Yes (Hospitalization)
  Sender: FDA-Public Use
  Company Number: DE-MEDIMMUNE-MEDI-0015336

PATIENT
  Age: 7 Month
  Weight: 2.41 kg

DRUGS (4)
  1. COLECALCIFEROL [Concomitant]
  2. FERROUS SULFATE TAB [Concomitant]
  3. SYNAGIS [Suspect]
     Route: 030
     Dates: start: 20111223, end: 20111223
  4. SIMETICONE [Concomitant]

REACTIONS (2)
  - BRONCHITIS [None]
  - RESPIRATORY FAILURE [None]
